FAERS Safety Report 7512550-X (Version None)
Quarter: 2011Q2

REPORT INFORMATION
  Report Type: 
  Country: None (occurrence: None)
  Receive Date: 20110520
  Receipt Date: 20110506
  Transmission Date: 20111010
  Serious: Yes (Hospitalization, Other)
  Sender: FDA-Public Use
  Company Number: WAES 1101USA02168

PATIENT
  Age: 89 Year
  Sex: Male
  Weight: 84.369 kg

DRUGS (9)
  1. CLOPIDOGREL BISULFATE [Concomitant]
  2. PRINIVIL [Suspect]
     Dosage: 10 MG/DAILY/PO
     Route: 048
     Dates: start: 20090324, end: 20110225
  3. BLINDED THERAPY [Concomitant]
  4. FUROSEMIDE UNK [Suspect]
     Dosage: 40 MG/DAILY/PO
     Route: 048
     Dates: start: 20080711
  5. OMEGA-3 MARINE TRIGLYCERIDES [Concomitant]
  6. METOPROLOL SUCCINATE [Concomitant]
  7. ASPIRIN [Concomitant]
  8. ISOSORBIDE MONONITRATE [Concomitant]
  9. PLACEBO [Concomitant]

REACTIONS (7)
  - CONFUSIONAL STATE [None]
  - AGITATION [None]
  - VICTIM OF ABUSE [None]
  - HALLUCINATION [None]
  - AGGRESSION [None]
  - DEHYDRATION [None]
  - RENAL FAILURE [None]
